FAERS Safety Report 7281273-7 (Version None)
Quarter: 2011Q1

REPORT INFORMATION
  Report Type: 
  Country: None (occurrence: None)
  Receive Date: 20110208
  Receipt Date: 20110131
  Transmission Date: 20110831
  Serious: Yes (Death, Other)
  Sender: FDA-Public Use
  Company Number: CHPA2011US02086

PATIENT
  Age: 70 Year
  Sex: Male

DRUGS (8)
  1. ETHANOL [Suspect]
     Route: 048
  2. ACETAMINOPHEN [Suspect]
     Route: 048
  3. FLUOXETINE HYDROCHLORIDE [Concomitant]
  4. LEVOTHYROXINE SODIUM [Concomitant]
  5. PRAVASTATIN [Concomitant]
  6. QUETIAPINE [Concomitant]
  7. PERPHENAZINE [Concomitant]
  8. ACETYLSALICYLIC ACID [Concomitant]

REACTIONS (10)
  - MYDRIASIS [None]
  - COMPLETED SUICIDE [None]
  - ASPARTATE AMINOTRANSFERASE INCREASED [None]
  - AMMONIA INCREASED [None]
  - CONFUSIONAL STATE [None]
  - ALANINE AMINOTRANSFERASE INCREASED [None]
  - MULTI-ORGAN FAILURE [None]
  - LETHARGY [None]
  - ANURIA [None]
  - AREFLEXIA [None]
